FAERS Safety Report 10206620 (Version 1)
Quarter: 2014Q2

REPORT INFORMATION
  Report Type: Spontaneous
  Country: US (occurrence: US)
  Receive Date: 20140530
  Receipt Date: 20140530
  Transmission Date: 20141212
  Serious: No
  Sender: FDA-Public Use
  Company Number: US-GLAXOSMITHKLINE-B0914080A

PATIENT
  Age: 18 Year
  Sex: Female

DRUGS (6)
  1. LETAIRIS [Suspect]
     Indication: VENTRICULAR SEPTAL DEFECT REPAIR
     Dosage: 10MG PER DAY
     Route: 048
     Dates: start: 20110523
  2. LETAIRIS [Suspect]
     Indication: HEART DISEASE CONGENITAL
  3. LETAIRIS [Suspect]
     Indication: PULMONARY HYPERTENSION
  4. EPOPROSTENOL [Suspect]
  5. REMODULIN [Suspect]
  6. ADCIRCA [Concomitant]

REACTIONS (5)
  - Accidental exposure to product [Unknown]
  - Ocular hyperaemia [Unknown]
  - Headache [Unknown]
  - Nausea [Unknown]
  - Rash macular [Unknown]
